FAERS Safety Report 20412901 (Version 1)
Quarter: 2022Q1

REPORT INFORMATION
  Report Type: Other
  Country: US (occurrence: US)
  Receive Date: 20220201
  Receipt Date: 20220201
  Transmission Date: 20220423
  Serious: No
  Sender: FDA-Public Use
  Company Number: US-Covis Pharma GmbH-2022COV00328

PATIENT
  Age: 35 Year
  Sex: Female
  Weight: 87.168 kg

DRUGS (1)
  1. MAKENA [Suspect]
     Active Substance: HYDROXYPROGESTERONE CAPROATE
     Indication: Premature delivery
     Route: 058

REACTIONS (5)
  - Cognitive disorder [Unknown]
  - Memory impairment [Unknown]
  - Confusional state [Unknown]
  - Ataxia [Unknown]
  - Injection site pain [Unknown]
